FAERS Safety Report 9535534 (Version 1)
Quarter: 2013Q3

REPORT INFORMATION
  Report Type: Spontaneous
  Country: US (occurrence: US)
  Receive Date: 20130918
  Receipt Date: 20130918
  Transmission Date: 20140515
  Serious: No
  Sender: FDA-Public Use
  Company Number: US-B.I. PHARMACEUTICALS,INC./RIDGEFIELD-2013-BI-28275BP

PATIENT
  Age: 53 Year
  Sex: Female
  Weight: 100 kg

DRUGS (1)
  1. COMBIVENT [Suspect]
     Indication: CHRONIC OBSTRUCTIVE PULMONARY DISEASE
     Dosage: DOSE PER APPLICATION: 20 MCG / 100 MCG; DAILY DOSE: 320 MCG/ 1600 MCG
     Route: 055
     Dates: start: 201308

REACTIONS (1)
  - Prescribed overdose [Not Recovered/Not Resolved]
